FAERS Safety Report 7355315-4 (Version None)
Quarter: 2011Q1

REPORT INFORMATION
  Report Type: 
  Country: None (occurrence: None)
  Receive Date: 20110316
  Receipt Date: 20110308
  Transmission Date: 20110831
  Serious: Yes (Hospitalization, Other)
  Sender: FDA-Public Use
  Company Number: JP-ROCHE-726177

PATIENT
  Sex: Female

DRUGS (43)
  1. TOCILIZUMAB [Suspect]
     Route: 041
     Dates: start: 20100823, end: 20100921
  2. TOCILIZUMAB [Suspect]
     Route: 041
     Dates: start: 20110111, end: 20110111
  3. PREDNISOLONE [Suspect]
     Indication: CASTLEMAN'S DISEASE
     Route: 048
     Dates: start: 20091124, end: 20091207
  4. PREDNISOLONE [Suspect]
     Route: 048
     Dates: start: 20100712, end: 20100725
  5. GASPORT [Concomitant]
     Route: 048
     Dates: start: 20100202
  6. MUCODYNE [Concomitant]
     Dosage: FORM: PERORAL AGENT
     Route: 048
     Dates: start: 20100210
  7. LIPITOR [Concomitant]
     Route: 048
     Dates: start: 20100511
  8. FUNGIZONE [Concomitant]
     Route: 048
     Dates: start: 20100401
  9. ALENDRONATE SODIUM [Concomitant]
     Route: 048
     Dates: start: 20091119
  10. TOCILIZUMAB [Suspect]
     Indication: CASTLEMAN'S DISEASE
     Route: 041
     Dates: start: 20100318, end: 20100318
  11. TOCILIZUMAB [Suspect]
     Route: 041
     Dates: start: 20100427, end: 20100427
  12. TOCILIZUMAB [Suspect]
     Route: 041
     Dates: start: 20100628, end: 20100809
  13. PREDNISOLONE [Suspect]
     Route: 048
     Dates: start: 20100426, end: 20100510
  14. PREDNISOLONE [Suspect]
     Route: 048
     Dates: start: 20100726, end: 20100822
  15. PREDNISOLONE [Suspect]
     Route: 048
     Dates: start: 20101004, end: 20110206
  16. GASPORT [Concomitant]
     Route: 048
     Dates: start: 20091119, end: 20100115
  17. MEDICON [Concomitant]
     Dosage: FORM: PERORAL AGENT
     Route: 048
     Dates: start: 20100210, end: 20100414
  18. TOCILIZUMAB [Suspect]
     Route: 041
     Dates: start: 20110207, end: 20110207
  19. METHYLPREDNISOLONE SODIUM SUCCINATE [Suspect]
     Indication: CASTLEMAN'S DISEASE
     Route: 042
     Dates: start: 20091121, end: 20091123
  20. PREDNISOLONE [Suspect]
     Route: 048
     Dates: start: 20100202, end: 20100414
  21. TOCILIZUMAB [Suspect]
     Route: 041
     Dates: start: 20101129, end: 20101129
  22. PREDNISOLONE [Suspect]
     Route: 048
     Dates: start: 20091222, end: 20100115
  23. TOCILIZUMAB [Suspect]
     Route: 041
     Dates: start: 20100401, end: 20100415
  24. TOCILIZUMAB [Suspect]
     Route: 041
     Dates: start: 20101213, end: 20101213
  25. PREDNISOLONE [Suspect]
     Route: 048
     Dates: start: 20091215, end: 20091221
  26. THYRADIN [Concomitant]
     Dosage: FORM: PERORAL AGENT
     Route: 048
     Dates: start: 20100726
  27. TOCILIZUMAB [Suspect]
     Route: 041
     Dates: start: 20101004, end: 20101018
  28. TOCILIZUMAB [Suspect]
     Route: 041
     Dates: start: 20110221
  29. PREDNISOLONE [Suspect]
     Route: 048
     Dates: start: 20100415, end: 20100425
  30. PREDNISOLONE [Suspect]
     Route: 048
     Dates: start: 20100628, end: 20100711
  31. PREDNISOLONE [Suspect]
     Route: 048
     Dates: start: 20110207
  32. BACTRIM [Concomitant]
     Dosage: FORM: PERORAL AGENT
     Route: 048
     Dates: start: 20091119
  33. THYRADIN [Concomitant]
     Route: 048
  34. HOKUNALIN [Concomitant]
     Dosage: FORM TAPE
     Route: 062
     Dates: start: 20110124
  35. TOCILIZUMAB [Suspect]
     Route: 041
     Dates: start: 20101227, end: 20101227
  36. PREDNISOLONE [Suspect]
     Route: 048
     Dates: start: 20100823, end: 20101003
  37. ASPIRIN [Concomitant]
     Route: 048
     Dates: start: 20091119
  38. TOCILIZUMAB [Suspect]
     Route: 041
     Dates: start: 20100511, end: 20100608
  39. TOCILIZUMAB [Suspect]
     Route: 041
     Dates: start: 20101101, end: 20101115
  40. TOCILIZUMAB [Suspect]
     Route: 041
     Dates: start: 20110124, end: 20110124
  41. PREDNISOLONE [Suspect]
     Route: 048
     Dates: start: 20091208, end: 20091214
  42. PREDNISOLONE [Suspect]
     Route: 048
     Dates: start: 20100511, end: 20100627
  43. BONALON [Concomitant]
     Route: 048
     Dates: start: 20091119

REACTIONS (2)
  - INTERSTITIAL LUNG DISEASE [None]
  - PSYCHOTIC DISORDER [None]
